FAERS Safety Report 7936108 (Version 2)
Quarter: 2014Q2

REPORT INFORMATION
  Report Type: Report from Study
  Country: US (occurrence: US)
  Receive Date: 20110509
  Receipt Date: 20140401
  Transmission Date: 20141212
  Serious: Yes (Hospitalization, Other)
  Sender: FDA-Public Use
  Company Number: US-ALEXION-A201000795

PATIENT
  Age: 60 Year
  Sex: Male

DRUGS (8)
  1. SOLIRIS [Suspect]
     Indication: PAROXYSMAL NOCTURNAL HAEMOGLOBINURIA
     Dosage: 600 MG, QW FOR 5 WEEKS
     Route: 042
     Dates: start: 20070427
  2. SOLIRIS [Suspect]
     Dosage: 900 MG QW
     Dates: start: 200706
  3. METOPROLOL [Concomitant]
     Dosage: UNK
     Dates: end: 20100707
  4. PREDNISONE [Concomitant]
     Indication: PAROXYSMAL NOCTURNAL HAEMOGLOBINURIA
     Dosage: 5 MG, QD
     Route: 048
  5. FOLIC ACID [Concomitant]
     Indication: PAROXYSMAL NOCTURNAL HAEMOGLOBINURIA
     Dosage: 5 MG, QD
     Route: 048
  6. ASPIRIN [Concomitant]
     Indication: ANTICOAGULANT THERAPY
     Dosage: 81 MG, QD
     Route: 048
  7. FERROUS GLUCONATE [Concomitant]
     Indication: BLOOD IRON DECREASED
     Dosage: 27 MG, QD
     Route: 048
  8. TESTOSTERONE [Concomitant]
     Dosage: MONTHLY INJECTION

REACTIONS (15)
  - Dehydration [Recovered/Resolved]
  - Fatigue [Recovered/Resolved]
  - Atrial fibrillation [Unknown]
  - Pyrexia [Recovered/Resolved]
  - Nephrolithiasis [Recovered/Resolved]
  - Haematocrit decreased [Recovered/Resolved]
  - Chest discomfort [Recovered/Resolved]
  - Hypotension [Recovered/Resolved]
  - Chills [Recovered/Resolved]
  - Blood pressure increased [Recovered/Resolved]
  - Heart rate decreased [Recovered/Resolved]
  - Headache [Recovered/Resolved]
  - Nausea [Recovered/Resolved]
  - Decreased appetite [Recovered/Resolved]
  - Diarrhoea [Recovered/Resolved]
